FAERS Safety Report 11739705 (Version 1)
Quarter: 2015Q4

REPORT INFORMATION
  Report Type: Spontaneous
  Country: GB (occurrence: GB)
  Receive Date: 20151113
  Receipt Date: 20151113
  Transmission Date: 20160304
  Serious: Yes (Other)
  Sender: FDA-Public Use
  Company Number: GB-TEVA-606911ACC

PATIENT
  Age: 20 Year
  Sex: Female
  Weight: 51 kg

DRUGS (4)
  1. OMEPRAZOL [Concomitant]
     Active Substance: OMEPRAZOLE
  2. VALIUM [Concomitant]
     Active Substance: DIAZEPAM
  3. PROPRANOLOL [Suspect]
     Active Substance: PROPRANOLOL\PROPRANOLOL HYDROCHLORIDE
     Indication: ANXIETY DISORDER
     Dosage: TOOK 2 TABLETS WITHIN AN HOUR OF EACH OTHER
     Route: 048
  4. NAPROXEN. [Concomitant]
     Active Substance: NAPROXEN

REACTIONS (7)
  - Chest pain [Recovered/Resolved with Sequelae]
  - Sweat gland disorder [Recovered/Resolved]
  - Panic reaction [Recovered/Resolved]
  - Dizziness postural [Recovered/Resolved]
  - Migraine [Recovered/Resolved]
  - Cardiospasm [Recovered/Resolved]
  - Dyspnoea [Recovered/Resolved]
